FAERS Safety Report 11307106 (Version 3)
Quarter: 2015Q3

REPORT INFORMATION
  Report Type: Report from Study
  Country: US (occurrence: US)
  Receive Date: 20150723
  Receipt Date: 20150812
  Transmission Date: 20151125
  Serious: Yes (Death, Hospitalization, Other)
  Sender: FDA-Public Use
  Company Number: US-JNJFOC-20150716612

PATIENT
  Age: 67 Year
  Sex: Male
  Weight: 104.2 kg

DRUGS (12)
  1. RITUXIMAB [Suspect]
     Active Substance: RITUXIMAB
     Indication: CENTRAL NERVOUS SYSTEM LYMPHOMA
     Dosage: DAYS 1 AND 2
     Route: 042
     Dates: start: 20150416, end: 20150512
  2. ETOPOSIDE. [Suspect]
     Active Substance: ETOPOSIDE
     Indication: CENTRAL NERVOUS SYSTEM LYMPHOMA
     Dosage: OVER 30-60 MIN ON DAYS 2-5
     Route: 042
     Dates: start: 20150417, end: 20150512
  3. LOVENOX [Concomitant]
     Active Substance: ENOXAPARIN SODIUM
  4. IBRUTINIB [Suspect]
     Active Substance: IBRUTINIB
     Indication: CENTRAL NERVOUS SYSTEM LYMPHOMA
     Route: 048
     Dates: start: 20150507, end: 20150512
  5. PEGFILGRASTIM [Suspect]
     Active Substance: PEGFILGRASTIM
     Indication: CENTRAL NERVOUS SYSTEM LYMPHOMA
     Dosage: ON DAY 6
     Route: 058
     Dates: start: 20150421, end: 20150512
  6. CYTARABINE. [Suspect]
     Active Substance: CYTARABINE
     Indication: CENTRAL NERVOUS SYSTEM LYMPHOMA
     Dosage: IT OR IVC ON DAYS 1 AND 5
     Dates: start: 20150507, end: 20150511
  7. IBRUTINIB [Suspect]
     Active Substance: IBRUTINIB
     Indication: CENTRAL NERVOUS SYSTEM LYMPHOMA
     Dosage: DAYS 1-10
     Route: 048
     Dates: start: 20150402, end: 20150425
  8. DOXORUBICIN [Suspect]
     Active Substance: DOXORUBICIN
     Indication: CENTRAL NERVOUS SYSTEM LYMPHOMA
     Dosage: OVER 1 HOUR ON DAY 2
     Route: 042
     Dates: start: 20150417, end: 20150512
  9. METOPROLOL [Concomitant]
     Active Substance: METOPROLOL
  10. BACTRIM [Concomitant]
     Active Substance: SULFAMETHOXAZOLE\TRIMETHOPRIM
     Dosage: DOUBLE STRENGTH MONDAY, WEDNESDAY, FRIDAY
     Route: 048
  11. TEMOZOLOMIDE. [Suspect]
     Active Substance: TEMOZOLOMIDE
     Indication: CENTRAL NERVOUS SYSTEM LYMPHOMA
     Dosage: OVER 90 MIN ON DAYS 2-5
     Route: 042
     Dates: start: 20150417, end: 20150512
  12. DEXAMETHASONE. [Suspect]
     Active Substance: DEXAMETHASONE
     Indication: CENTRAL NERVOUS SYSTEM LYMPHOMA
     Dosage: DAYS 1-5
     Route: 048
     Dates: start: 20150416, end: 20150512

REACTIONS (4)
  - Intra-abdominal haemorrhage [Fatal]
  - Atrial fibrillation [Recovering/Resolving]
  - Ventricular arrhythmia [Fatal]
  - Sinus bradycardia [Recovering/Resolving]

NARRATIVE: CASE EVENT DATE: 20150419
